FAERS Safety Report 19349086 (Version 1)
Quarter: 2021Q2

REPORT INFORMATION
  Report Type: Spontaneous
  Country: US (occurrence: US)
  Receive Date: 20210529
  Receipt Date: 20210529
  Transmission Date: 20210717
  Serious: Yes (Hospitalization)
  Sender: FDA-Public Use
  Company Number: None

PATIENT
  Age: 39 Year
  Sex: Male
  Weight: 76.95 kg

DRUGS (4)
  1. SERTRALINE 50 MG [Suspect]
     Active Substance: SERTRALINE HYDROCHLORIDE
     Indication: ANXIETY
     Dates: start: 20210423, end: 20210515
  2. SERTRALINE 50 MG [Suspect]
     Active Substance: SERTRALINE HYDROCHLORIDE
     Indication: INSOMNIA
     Dates: start: 20210423, end: 20210515
  3. ALPRAZOLAM. [Concomitant]
     Active Substance: ALPRAZOLAM
  4. SERTRALINE [Concomitant]
     Active Substance: SERTRALINE HYDROCHLORIDE

REACTIONS (9)
  - Agitation [None]
  - Hyperhidrosis [None]
  - Dry mouth [None]
  - Muscle twitching [None]
  - Insomnia [None]
  - Decreased appetite [None]
  - Erectile dysfunction [None]
  - Bruxism [None]
  - Weight decreased [None]

NARRATIVE: CASE EVENT DATE: 20210510
